FAERS Safety Report 12529745 (Version 1)
Quarter: 2016Q3

REPORT INFORMATION
  Report Type: Other
  Country: IR (occurrence: US)
  Receive Date: 20160706
  Receipt Date: 20160706
  Transmission Date: 20161109
  Serious: No
  Sender: FDA-Public Use
  Company Number: US-LUPIN PHARMACEUTICALS INC.-2016-01605

PATIENT
  Age: 32 Year
  Sex: Female
  Weight: 48 kg

DRUGS (2)
  1. CYPROTERONE [Suspect]
     Active Substance: CYPROTERONE
     Indication: DYSMENORRHOEA
     Route: 065
  2. DROSPIRENONE + ETHINYL ESTRADIOL [Suspect]
     Active Substance: DROSPIRENONE\ETHINYL ESTRADIOL
     Indication: DYSMENORRHOEA
     Route: 065

REACTIONS (1)
  - Skin hyperpigmentation [Unknown]
